FAERS Safety Report 5095028-5 (Version None)
Quarter: 2006Q3

REPORT INFORMATION
  Report Type: 
  Country: None (occurrence: None)
  Receive Date: 20060901
  Receipt Date: 20060824
  Transmission Date: 20061208
  Serious: Yes (Other)
  Sender: FDA-Public Use
  Company Number: DE-BRISTOL-MYERS SQUIBB COMPANY-13493697

PATIENT

DRUGS (1)
  1. ENDOXAN [Suspect]
     Indication: NEOPLASM MALIGNANT

REACTIONS (1)
  - RETINOPATHY [None]
